FAERS Safety Report 15927269 (Version 2)
Quarter: 2019Q1

REPORT INFORMATION
  Report Type: Spontaneous
  Country: US (occurrence: US)
  Receive Date: 20190205
  Receipt Date: 20190219
  Transmission Date: 20190417
  Serious: No
  Sender: FDA-Public Use
  Company Number: US-ALLERGAN-1849243US

PATIENT
  Age: 64 Year
  Sex: Female

DRUGS (2)
  1. BOTOX COSMETIC [Suspect]
     Active Substance: ONABOTULINUMTOXINA
     Indication: SKIN WRINKLING
     Dosage: ACTUAL:2U TO LATERAL CORRUGATOR(1U EACH SITE);9U TO RIGHT MEDIAL AND 11U TO LEFT MEDIAL CORRUGATOR
     Route: 030
     Dates: start: 20180130, end: 20180130
  2. BOTOX COSMETIC [Suspect]
     Active Substance: ONABOTULINUMTOXINA
     Indication: SKIN WRINKLING

REACTIONS (4)
  - Off label use [Unknown]
  - Eye irritation [Not Recovered/Not Resolved]
  - Eyelid ptosis [Recovered/Resolved]
  - Dry eye [Recovering/Resolving]

NARRATIVE: CASE EVENT DATE: 20180130
